FAERS Safety Report 4639824-4 (Version None)
Quarter: 2005Q2

REPORT INFORMATION
  Report Type: 
  Country: None (occurrence: None)
  Receive Date: 20050415
  Receipt Date: 20050404
  Transmission Date: 20051028
  Serious: Yes (Hospitalization)
  Sender: FDA-Public Use
  Company Number: WAES 0504USA00578

PATIENT
  Age: 38 Year
  Sex: Male

DRUGS (4)
  1. CRIXIVAN [Suspect]
     Indication: HIV INFECTION
     Dosage: 800 MG/BID/PO
     Route: 048
     Dates: start: 20010306, end: 20031029
  2. PROLEUKIN [Suspect]
     Indication: HIV INFECTION
     Dosage: BID/SC
     Route: 058
     Dates: start: 19991220, end: 19991224
  3. NEVIRAPINE [Concomitant]
  4. NORVIR [Concomitant]

REACTIONS (3)
  - BACK PAIN [None]
  - GROIN PAIN [None]
  - RENAL COLIC [None]
